FAERS Safety Report 7927843-1 (Version None)
Quarter: 2011Q4

REPORT INFORMATION
  Report Type: 
  Country: None (occurrence: None)
  Receive Date: 20111118
  Receipt Date: 20111118
  Transmission Date: 20120403
  Serious: No
  Sender: FDA-Public Use
  Company Number: None

PATIENT
  Sex: Female
  Weight: 63.502 kg

DRUGS (1)
  1. CYMBALTA [Suspect]
     Indication: SPINAL OSTEOARTHRITIS
     Dosage: 60 MG
     Route: 048
     Dates: start: 20110501, end: 20111109

REACTIONS (4)
  - HEADACHE [None]
  - NAUSEA [None]
  - NIGHT SWEATS [None]
  - DIZZINESS [None]
